FAERS Safety Report 9702475 (Version 4)
Quarter: 2013Q4

REPORT INFORMATION
  Report Type: Spontaneous
  Country: US (occurrence: US)
  Receive Date: 20131121
  Receipt Date: 20131216
  Transmission Date: 20140711
  Serious: Yes (Hospitalization)
  Sender: FDA-Public Use
  Company Number: US-DENDREON CORPORATION-2013PROUSA03297

PATIENT
  Age: 68 Year
  Sex: Male
  Weight: 117.1 kg

DRUGS (9)
  1. PROVENGE [Suspect]
     Indication: PROSTATE CANCER METASTATIC
     Dosage: 250 MG, SINGLE
     Route: 042
     Dates: start: 20131104, end: 20131104
  2. ZYTIGA [Suspect]
     Dosage: 1000 MG, QD
     Route: 048
  3. COREG [Concomitant]
     Dosage: 6.25 UNK, UNK
  4. METFORMIN HCL [Concomitant]
     Dosage: 400 MG, QID
  5. ASPIRIN [Concomitant]
  6. LIPITOR [Concomitant]
  7. PREDNISONE [Concomitant]
     Dosage: 5 MG, QOD
  8. ACCURETIC [Concomitant]
  9. ONGLYZA [Concomitant]

REACTIONS (1)
  - Cardiac failure [Recovered/Resolved]
